FAERS Safety Report 16262270 (Version 1)
Quarter: 2019Q2

REPORT INFORMATION
  Report Type: Report from Study
  Country: US (occurrence: US)
  Receive Date: 20190501
  Receipt Date: 20190501
  Transmission Date: 20190711
  Serious: Yes (Other)
  Sender: FDA-Public Use
  Company Number: US-TESAROUBC-2018-TSO0965-US

PATIENT
  Age: 59 Year
  Sex: Female

DRUGS (2)
  1. ZEJULA [Suspect]
     Active Substance: NIRAPARIB
     Indication: OVARIAN CANCER
     Dosage: 300 MG (TAKING 3 CAPSULES OF 100 MG) ONCE DAILY AFTERNOON (QPM) WITH FOOD
     Route: 048
     Dates: start: 20180927, end: 201811
  2. ZEJULA [Suspect]
     Active Substance: NIRAPARIB
     Dosage: 200MG QPM WITH AND WITHOUT FOOD
     Route: 048
     Dates: start: 201812

REACTIONS (9)
  - Kidney infection [Unknown]
  - Carbohydrate antigen 125 increased [Recovered/Resolved]
  - Herpes zoster [Unknown]
  - Fatigue [Unknown]
  - Mass [Recovering/Resolving]
  - Insomnia [Unknown]
  - Constipation [Not Recovered/Not Resolved]
  - Platelet count decreased [Recovered/Resolved]
  - Nausea [Unknown]

NARRATIVE: CASE EVENT DATE: 2018
